FAERS Safety Report 22389059 (Version 1)
Quarter: 2023Q2

REPORT INFORMATION
  Report Type: Spontaneous
  Country: US (occurrence: None)
  Receive Date: 20230530
  Receipt Date: 20230530
  Transmission Date: 20230722
  Serious: Yes (Hospitalization)
  Sender: FDA-Public Use
  Company Number: None

PATIENT
  Age: 57 Year
  Sex: Male
  Weight: 92 kg

DRUGS (16)
  1. ENVARSUS XR [Suspect]
     Active Substance: TACROLIMUS
     Indication: Prophylaxis against transplant rejection
     Dosage: FREQUENCY : DAILY;?
     Route: 048
  2. MYCOPHENOLIC ACID [Suspect]
     Active Substance: MYCOPHENOLIC ACID
     Indication: Prophylaxis against transplant rejection
     Dosage: FREQUENCY : TWICE A DAY;?
     Route: 048
  3. Acetaminophen 325mg [Concomitant]
  4. AMLODIPINE [Concomitant]
     Active Substance: AMLODIPINE BESYLATE
  5. Calcium Citrate w/ Vitamin D [Concomitant]
  6. CARVEDILOL [Concomitant]
     Active Substance: CARVEDILOL
  7. DOXAZOSIN [Concomitant]
     Active Substance: DOXAZOSIN MESYLATE
  8. HUMALOG [Concomitant]
     Active Substance: INSULIN LISPRO
  9. INSULIN HUMAN [Concomitant]
     Active Substance: INSULIN HUMAN
  10. MAGNESIUM OXIDE 400MG [Concomitant]
     Active Substance: MAGNESIUM OXIDE
  11. OMEPRAZOLE [Concomitant]
     Active Substance: OMEPRAZOLE
  12. PREDNISONE [Concomitant]
     Active Substance: PREDNISONE
  13. Rosuvastain 10mg [Concomitant]
  14. TORSEMIDE [Concomitant]
     Active Substance: TORSEMIDE
  15. Vitamin B12 1000mcg [Concomitant]
  16. Vitamin D3 1000 units [Concomitant]

REACTIONS (2)
  - COVID-19 [None]
  - Pain [None]

NARRATIVE: CASE EVENT DATE: 20230420
